FAERS Safety Report 15587262 (Version 1)
Quarter: 2018Q4

REPORT INFORMATION
  Report Type: Spontaneous
  Country: CZ (occurrence: CZ)
  Receive Date: 20181105
  Receipt Date: 20181105
  Transmission Date: 20190205
  Serious: Yes (Death)
  Sender: FDA-Public Use
  Company Number: CZ-SA-2018SA302192

PATIENT
  Age: 21 Year
  Sex: Female

DRUGS (2)
  1. DOCETAXEL. [Suspect]
     Active Substance: DOCETAXEL
     Indication: LUNG NEOPLASM MALIGNANT
     Dosage: 80 MG/M2, QCY
     Route: 042
  2. DOCETAXEL. [Suspect]
     Active Substance: DOCETAXEL
     Dosage: 80 MG/M2, QCY
     Route: 042
     Dates: start: 201701

REACTIONS (2)
  - Infection [Fatal]
  - Disease progression [Fatal]

NARRATIVE: CASE EVENT DATE: 2017
